FAERS Safety Report 24583828 (Version 1)
Quarter: 2024Q4

REPORT INFORMATION
  Report Type: Spontaneous
  Country: US (occurrence: US)
  Receive Date: 20241106
  Receipt Date: 20241106
  Transmission Date: 20250114
  Serious: Yes (Hospitalization, Other)
  Sender: AMGEN
  Company Number: US-AMGEN-USASP2024214676

PATIENT

DRUGS (2)
  1. PROCRIT [Suspect]
     Active Substance: ERYTHROPOIETIN
     Indication: Nephrogenic anaemia
     Dosage: UNK
     Route: 065
  2. VADADUSTAT [Suspect]
     Active Substance: VADADUSTAT
     Indication: Nephrogenic anaemia
     Dosage: UNK
     Route: 048

REACTIONS (18)
  - Pneumonia [Unknown]
  - Arteriovenous fistula thrombosis [Unknown]
  - Cardiac failure [Unknown]
  - Hyperkalaemia [Unknown]
  - Acute myocardial infarction [Unknown]
  - Coronary artery disease [Unknown]
  - Nausea [Unknown]
  - Diarrhoea [Unknown]
  - Vomiting [Unknown]
  - Headache [Unknown]
  - Dizziness [Unknown]
  - Abdominal pain [Unknown]
  - Muscle spasms [Unknown]
  - Back pain [Unknown]
  - Hypotension [Unknown]
  - Hypertension [Unknown]
  - Anaemia [Unknown]
  - Product administration error [Unknown]
